FAERS Safety Report 9580258 (Version 1)
Quarter: 2013Q4

REPORT INFORMATION
  Report Type: Report from Study
  Country: DE (occurrence: DE)
  Receive Date: 20131002
  Receipt Date: 20131002
  Transmission Date: 20140711
  Serious: Yes (Other)
  Sender: FDA-Public Use
  Company Number: DE-SA-2013SA095628

PATIENT
  Age: 65 Year
  Sex: Male
  Weight: 99 kg

DRUGS (5)
  1. MULTAQ [Suspect]
     Indication: ATRIAL FIBRILLATION
     Route: 048
     Dates: start: 20121106, end: 20130815
  2. FACTOR II (PROTHROMBIN) [Concomitant]
     Indication: THROMBOSIS PROPHYLAXIS
     Dates: start: 20120824
  3. BETA BLOCKING AGENTS [Concomitant]
     Dates: start: 201208
  4. METOPROLOL [Concomitant]
     Dosage: UNIT CONT:
  5. XARELTO [Concomitant]

REACTIONS (5)
  - Atrial fibrillation [Recovered/Resolved]
  - Dizziness [Recovered/Resolved]
  - Palpitations [Recovered/Resolved]
  - Arrhythmia [Recovered/Resolved]
  - Condition aggravated [Recovered/Resolved]
